FAERS Safety Report 7298433-1 (Version None)
Quarter: 2011Q1

REPORT INFORMATION
  Report Type: 
  Country: None (occurrence: None)
  Receive Date: 20110214
  Receipt Date: 20110214
  Transmission Date: 20110831
  Serious: Yes (Other)
  Sender: FDA-Public Use
  Company Number: None

PATIENT
  Age: 5 Month
  Sex: Male
  Weight: 77.5651 kg

DRUGS (3)
  1. NASOHIST DM PEDIATRIC DROPS, 1/3/2 MG/ML CLM/DM/PHE [Suspect]
     Indication: COUGH
     Dosage: 1/4 ML PER 6 HOURS
     Dates: start: 20110106, end: 20110124
  2. NASOHIST DM PEDIATRIC DROPS, 1/3/2 MG/ML CLM/DM/PHE [Suspect]
     Indication: ANTIALLERGIC THERAPY
     Dosage: 1/4 ML PER 6 HOURS
     Dates: start: 20110106, end: 20110124
  3. NASOHIST DM PEDIATRIC DROPS, 1/3/2 MG/ML CLM/DM/PHE [Suspect]
     Indication: NASAL DECONGESTION THERAPY
     Dosage: 1/4 ML PER 6 HOURS
     Dates: start: 20110106, end: 20110124

REACTIONS (1)
  - CONVULSION [None]
